FAERS Safety Report 6803500-X (Version None)
Quarter: 2010Q2

REPORT INFORMATION
  Report Type: 
  Country: None (occurrence: None)
  Receive Date: 20100628
  Receipt Date: 20100617
  Transmission Date: 20101027
  Serious: Yes (Hospitalization)
  Sender: FDA-Public Use
  Company Number: JP-JNJFOC-20100606274

PATIENT
  Age: 33 Year
  Sex: Female

DRUGS (9)
  1. TOPIRAMATE [Suspect]
     Indication: EPILEPSY
     Route: 048
  2. TOPIRAMATE [Suspect]
     Route: 048
  3. TOPIRAMATE [Suspect]
     Route: 048
  4. SERENACE [Suspect]
     Indication: DRUG USE FOR UNKNOWN INDICATION
     Route: 048
  5. MYOCALM [Concomitant]
     Route: 048
  6. TIZANIDINE HCL [Concomitant]
     Route: 048
  7. ARGININE [Concomitant]
     Route: 050
  8. CARNITINE HYDROCHLORIDE [Concomitant]
     Route: 048
  9. COENZYME Q10 [Concomitant]
     Route: 048

REACTIONS (2)
  - ALTERED STATE OF CONSCIOUSNESS [None]
  - HYPERAMMONAEMIA [None]
